FAERS Safety Report 19416961 (Version 1)
Quarter: 2021Q2

REPORT INFORMATION
  Report Type: Spontaneous
  Country: US (occurrence: US)
  Receive Date: 20210614
  Receipt Date: 20210614
  Transmission Date: 20210717
  Serious: No
  Sender: FDA-Public Use
  Company Number: None

PATIENT
  Sex: Male

DRUGS (25)
  1. CALCIUM [Concomitant]
     Active Substance: CALCIUM
  2. DITIAZEM [Concomitant]
  3. LIDOCAINE. [Concomitant]
     Active Substance: LIDOCAINE
  4. TAMSULOSIN [Concomitant]
     Active Substance: TAMSULOSIN
  5. TEMISARTAN [Concomitant]
  6. INLYTA [Suspect]
     Active Substance: AXITINIB
     Indication: RENAL NEOPLASM
     Route: 048
     Dates: start: 20210522
  7. IBUPROFEN. [Concomitant]
     Active Substance: IBUPROFEN
  8. MIRALAX [Concomitant]
     Active Substance: POLYETHYLENE GLYCOL 3350
  9. VITAMIN B50 [Concomitant]
  10. VITAMIN E ZINC GLUCON [Concomitant]
  11. GABAPENTIN. [Concomitant]
     Active Substance: GABAPENTIN
  12. EZETIMBE [Concomitant]
     Active Substance: EZETIMIBE
  13. OMEGA III [Concomitant]
  14. OXYCONTIN [Concomitant]
     Active Substance: OXYCODONE HYDROCHLORIDE
  15. ALBUTEROL. [Concomitant]
     Active Substance: ALBUTEROL
  16. DOCUSATE [Concomitant]
     Active Substance: DOCUSATE
  17. LACTOBACILLU [Concomitant]
  18. LYSINE [Concomitant]
     Active Substance: LYSINE
  19. MULTI VITAMIN [Concomitant]
     Active Substance: VITAMINS
  20. OXYCODONE [Concomitant]
     Active Substance: OXYCODONE
  21. CONENZYSME [Concomitant]
  22. LABETALOL [Concomitant]
     Active Substance: LABETALOL\LABETALOL HYDROCHLORIDE
  23. VITAMIN D3 [Concomitant]
     Active Substance: CHOLECALCIFEROL
  24. BENZONATATE. [Concomitant]
     Active Substance: BENZONATATE
  25. VITAMIN E [Concomitant]
     Active Substance: .ALPHA.-TOCOPHEROL

REACTIONS (9)
  - Therapy interrupted [None]
  - Headache [None]
  - Hypertension [None]
  - Fatigue [None]
  - Cough [None]
  - Musculoskeletal pain [None]
  - Cardiac failure [None]
  - Musculoskeletal stiffness [None]
  - Abdominal discomfort [None]
